FAERS Safety Report 15395651 (Version 3)
Quarter: 2020Q3

REPORT INFORMATION
  Report Type: Report from Study
  Country: FR (occurrence: FR)
  Receive Date: 20180918
  Receipt Date: 20200730
  Transmission Date: 20201102
  Serious: Yes (Life-Threatening, Hospitalization)
  Sender: FDA-Public Use
  Company Number: FR-JNJFOC-20180844078

PATIENT
  Age: 48 Year
  Sex: Female
  Weight: 59 kg

DRUGS (26)
  1. METHOTREXATE. [Concomitant]
     Active Substance: METHOTREXATE
     Route: 048
     Dates: start: 20161205
  2. ENBREL [Concomitant]
     Active Substance: ETANERCEPT
     Route: 058
     Dates: start: 20160311
  3. ACITRETIN. [Concomitant]
     Active Substance: ACITRETIN
     Route: 065
     Dates: start: 20180528
  4. TOCTINO [Concomitant]
     Active Substance: ALITRETINOIN
     Route: 065
     Dates: start: 20170814
  5. ACIDE FOLIQUE [Concomitant]
     Active Substance: FOLIC ACID
     Route: 048
     Dates: start: 20180917
  6. REMICADE [Concomitant]
     Active Substance: INFLIXIMAB
     Route: 042
     Dates: start: 20160517
  7. METHOTREXATE. [Concomitant]
     Active Substance: METHOTREXATE
     Route: 048
     Dates: start: 20181017
  8. REMSIMA [Concomitant]
     Active Substance: INFLIXIMAB
     Route: 042
     Dates: start: 20160527
  9. TALTZ [Concomitant]
     Active Substance: IXEKIZUMAB
     Route: 058
     Dates: start: 20170410
  10. METHOTREXATE. [Concomitant]
     Active Substance: METHOTREXATE
     Route: 048
     Dates: start: 20160605
  11. CLOBETASOL PROPIONATE. [Concomitant]
     Active Substance: CLOBETASOL PROPIONATE
     Route: 065
     Dates: start: 20161003
  12. OTEZLA [Concomitant]
     Active Substance: APREMILAST
     Route: 048
     Dates: start: 20170109
  13. ACITRETIN. [Concomitant]
     Active Substance: ACITRETIN
     Route: 048
     Dates: start: 20190104
  14. ACIDE FOLIQUE [Concomitant]
     Active Substance: FOLIC ACID
     Route: 048
     Dates: start: 20160527
  15. METHOTREXATE. [Concomitant]
     Active Substance: METHOTREXATE
     Route: 048
     Dates: start: 20161003
  16. METHOTREXATE. [Concomitant]
     Active Substance: METHOTREXATE
     Route: 048
     Dates: start: 20190304
  17. FUNGIZONE [Concomitant]
     Active Substance: AMPHOTERICIN B
     Route: 065
     Dates: start: 20170410
  18. STELARA [Suspect]
     Active Substance: USTEKINUMAB
     Indication: PSORIASIS
     Route: 058
     Dates: start: 20151204, end: 20160311
  19. HUMIRA [Concomitant]
     Active Substance: ADALIMUMAB
     Route: 058
     Dates: start: 20170612
  20. ACIDE FOLIQUE [Concomitant]
     Active Substance: FOLIC ACID
     Route: 048
     Dates: start: 20161205
  21. METHOTREXATE. [Concomitant]
     Active Substance: METHOTREXATE
     Route: 048
     Dates: start: 20160517
  22. METHOTREXATE. [Concomitant]
     Active Substance: METHOTREXATE
     Route: 048
     Dates: start: 20160527
  23. VENTOLINE                          /00139501/ [Concomitant]
     Active Substance: ALBUTEROL
     Indication: PRODUCT USED FOR UNKNOWN INDICATION
     Route: 065
  24. TALTZ [Concomitant]
     Active Substance: IXEKIZUMAB
     Route: 058
     Dates: start: 20170425
  25. COSENTYX [Concomitant]
     Active Substance: SECUKINUMAB
     Route: 058
     Dates: start: 20160808
  26. CLARELUX [Concomitant]
     Active Substance: CLOBETASOL PROPIONATE
     Route: 065
     Dates: start: 20170814

REACTIONS (3)
  - Off label use [Unknown]
  - Product use issue [Unknown]
  - Bladder cancer recurrent [Not Recovered/Not Resolved]

NARRATIVE: CASE EVENT DATE: 20151204
